FAERS Safety Report 10035252 (Version 2)
Quarter: 2014Q2

REPORT INFORMATION
  Report Type: Spontaneous
  Country: AU (occurrence: AU)
  Receive Date: 20140325
  Receipt Date: 20140401
  Transmission Date: 20141212
  Serious: Yes (Other)
  Sender: FDA-Public Use
  Company Number: AU-SA-2014SA037107

PATIENT
  Age: 54 Year
  Sex: Male

DRUGS (4)
  1. FLUDARABINE PHOSPHATE [Suspect]
     Indication: CHRONIC LYMPHOCYTIC LEUKAEMIA
     Dosage: DAY 1-3 OF EACH CYCLE.?RECEIVED 2 X 6 CYCLES
     Route: 065
  2. CYCLOPHOSPHAMIDE [Suspect]
     Indication: CHRONIC LYMPHOCYTIC LEUKAEMIA
     Dosage: DAY 1-3 OF EACH CYCLE.?RECEIVED 2 X 6 CYCLES
     Route: 065
  3. RITUXIMAB [Suspect]
     Indication: CHRONIC LYMPHOCYTIC LEUKAEMIA
     Dosage: DAY 1 OF EACH CYCLE.?RECEIVED 2 X 6 CYCLES
     Route: 065
  4. LENALIDOMIDE [Suspect]
     Indication: CHRONIC LYMPHOCYTIC LEUKAEMIA
     Route: 065

REACTIONS (4)
  - Demyelination [Recovering/Resolving]
  - Lhermitte^s sign [Recovered/Resolved]
  - Erectile dysfunction [Recovering/Resolving]
  - Sensory loss [Recovering/Resolving]
